FAERS Safety Report 6272446-0 (Version None)
Quarter: 2009Q3

REPORT INFORMATION
  Report Type: 
  Country: None (occurrence: None)
  Receive Date: 20090717
  Receipt Date: 20090708
  Transmission Date: 20100115
  Serious: Yes (Hospitalization)
  Sender: FDA-Public Use
  Company Number: JP-ASTRAZENECA-2009SE04071

PATIENT
  Sex: Female
  Weight: 49 kg

DRUGS (8)
  1. BLOPRESS [Suspect]
     Indication: HYPERTENSION
     Route: 048
     Dates: start: 20080917, end: 20090603
  2. CERCINE [Concomitant]
     Route: 048
     Dates: start: 20011102, end: 20090515
  3. TAKEPRON [Concomitant]
     Route: 048
     Dates: start: 20030127, end: 20090603
  4. VOLTAREN [Concomitant]
     Route: 048
     Dates: start: 20011102, end: 20090515
  5. ALESION [Concomitant]
     Route: 048
     Dates: start: 20030512, end: 20090515
  6. ZESULAN [Concomitant]
     Route: 048
     Dates: start: 20070509, end: 20090515
  7. MEVALOTIN [Concomitant]
     Route: 048
     Dates: start: 20010129, end: 20090601
  8. GASMOTIN [Concomitant]
     Route: 048
     Dates: start: 20080718, end: 20090601

REACTIONS (1)
  - HEPATIC FUNCTION ABNORMAL [None]
